FAERS Safety Report 7523881-1 (Version None)
Quarter: 2011Q2

REPORT INFORMATION
  Report Type: 
  Country: None (occurrence: None)
  Receive Date: 20110603
  Receipt Date: 20110519
  Transmission Date: 20111010
  Serious: Yes (Other)
  Sender: FDA-Public Use
  Company Number: US-GENENTECH-318911

PATIENT
  Sex: Female
  Weight: 64 kg

DRUGS (1)
  1. OMALIZUMAB [Suspect]
     Indication: ASTHMA
     Dosage: UNK
     Route: 030
     Dates: start: 20060217

REACTIONS (2)
  - CONDITION AGGRAVATED [None]
  - ASTHMA [None]
